FAERS Safety Report 9507557 (Version 1)
Quarter: 2013Q1

REPORT INFORMATION
  Report Type: Spontaneous
  Country: US (occurrence: None)
  Receive Date: 20130305
  Receipt Date: 20130305
  Transmission Date: 20140127
  Serious: Yes (Other)
  Sender: FDA-Public Use
  Company Number: 163-21880-12042066

PATIENT
  Age: 79 Year
  Sex: Female
  Weight: 78.93 kg

DRUGS (8)
  1. REVLIMID [Suspect]
     Indication: MYELODYSPLASTIC SYNDROME
     Dosage: 10 MG, QD X 28 DAYS, PO
     Route: 048
     Dates: start: 20111015
  2. AMBIEN (ZOLPIDEM TARTRATE) [Concomitant]
  3. ZOLOFT (SERTRALINE HYDROCHLORIDE) [Concomitant]
  4. LISINOPRIL (LISINOPRIL) [Concomitant]
  5. HYDROCHLOROTHIAZIDE (HYDROCHLOROTHIAZIDE) [Concomitant]
  6. MELOXICAM (MELOXICAM) [Concomitant]
  7. MULTIVITAMINS (MULTIVITAMIINS) [Concomitant]
  8. VICODIN (VICODIN) [Concomitant]

REACTIONS (1)
  - Cataract [None]
